FAERS Safety Report 5609220-1 (Version None)
Quarter: 2008Q1

REPORT INFORMATION
  Report Type: 
  Country: None (occurrence: None)
  Receive Date: 20080129
  Receipt Date: 20080129
  Transmission Date: 20080703
  Serious: Yes (Hospitalization)
  Sender: FDA-Public Use
  Company Number: None

PATIENT
  Age: 59 Year
  Sex: Male

DRUGS (1)
  1. LISINOPRIL [Suspect]
     Dosage: ONCE DAILY PO
     Route: 048

REACTIONS (3)
  - ANGIOEDEMA [None]
  - DYSKINESIA [None]
  - RESPIRATORY DISTRESS [None]
